FAERS Safety Report 26176029 (Version 1)
Quarter: 2025Q4

REPORT INFORMATION
  Report Type: Spontaneous
  Country: US (occurrence: None)
  Receive Date: 20251217
  Receipt Date: 20251217
  Transmission Date: 20260118
  Serious: Yes (Other)
  Sender: FDA-CTU
  Company Number: None

PATIENT
  Age: 35 Year
  Sex: Female

DRUGS (1)
  1. COSMETICS [Suspect]
     Active Substance: COSMETICS
     Route: 061
     Dates: start: 20251205

REACTIONS (6)
  - Application site burn [None]
  - Application site burn [None]
  - Scar [None]
  - Application site injury [None]
  - Application site discolouration [None]
  - Legal problem [None]

NARRATIVE: CASE EVENT DATE: 20251205
